FAERS Safety Report 9167575 (Version 2)
Quarter: 2013Q1

REPORT INFORMATION
  Report Type: Spontaneous
  Country: FR (occurrence: None)
  Receive Date: 20130304
  Receipt Date: 20130314
  Transmission Date: 20140127
  Serious: Yes (Hospitalization)
  Sender: FDA-Public Use
  Company Number: 7194658

PATIENT
  Age: 40 Year
  Sex: Female

DRUGS (9)
  1. LEVOTHYROX [Suspect]
     Dosage: 1 IN 1 D ORAL
     Route: 048
     Dates: start: 201107
  2. TEGRETOL (CARBAMAZEPINE) UNKNOWN [Suspect]
     Route: 048
     Dates: start: 20121119, end: 20121203
  3. ATARAX (HYDROXYZINE) [Suspect]
     Route: 048
     Dates: start: 20121116, end: 20121120
  4. LYSANXIA [Suspect]
     Route: 048
     Dates: end: 20121108
  5. ALPRAZOLAM [Suspect]
     Route: 048
     Dates: start: 20081220
  6. MIRTAZAPINE [Suspect]
     Route: 048
     Dates: start: 20120301
  7. ZOPICLONE ARROW (ZOPICLONE) [Concomitant]
  8. TERCIAN (CYAMEMAZINE) [Concomitant]
  9. NORSET (MIRTAZAPINE) [Concomitant]

REACTIONS (3)
  - Cholestasis [None]
  - Depression [None]
  - Hepatic function abnormal [None]
